FAERS Safety Report 8167032-1 (Version None)
Quarter: 2012Q1

REPORT INFORMATION
  Report Type: 
  Country: None (occurrence: None)
  Receive Date: 20120227
  Receipt Date: 20120223
  Transmission Date: 20120608
  Serious: Yes (Hospitalization)
  Sender: FDA-Public Use
  Company Number: US-PFIZER INC-2012049266

PATIENT
  Sex: Male
  Weight: 72.562 kg

DRUGS (7)
  1. CHANTIX [Suspect]
     Indication: SMOKING CESSATION THERAPY
     Dosage: 0.5 MG, DAILY
     Route: 048
     Dates: start: 20120206, end: 20120201
  2. AMLODIPINE BESILATE [Concomitant]
     Dosage: 10 MG, UNK
  3. CHLORTHALIDONE [Suspect]
     Dosage: 12.5 MG, DAILY
     Route: 048
  4. ATORVASTATIN [Concomitant]
     Dosage: 10 MG, DAILY
  5. LISINOPRIL [Concomitant]
     Indication: HYPERTENSION
     Dosage: 40 MG, DAILY
  6. CHANTIX [Suspect]
     Dosage: 0.5 MG, 2X/DAY
     Route: 048
     Dates: start: 20120201, end: 20120209
  7. CARVEDILOL [Concomitant]
     Dosage: 3.12 MG, 2X/DAY

REACTIONS (1)
  - HEART RATE DECREASED [None]
